FAERS Safety Report 5193257-3 (Version None)
Quarter: 2006Q4

REPORT INFORMATION
  Report Type: 
  Country: None (occurrence: None)
  Receive Date: 20061228
  Receipt Date: 20060803
  Transmission Date: 20070319
  Serious: No
  Sender: FDA-Public Use
  Company Number: US-GLAXOSMITHKLINE-A0615072A

PATIENT
  Sex: Male

DRUGS (15)
  1. AVODART [Suspect]
     Indication: BENIGN PROSTATIC HYPERPLASIA
     Dosage: .5MG PER DAY
     Route: 048
     Dates: start: 20060418
  2. METFORMIN HCL [Concomitant]
  3. GLIPIZIDE [Concomitant]
  4. AVANDIA [Concomitant]
  5. MAVIK [Concomitant]
  6. ATENOLOL [Concomitant]
  7. FUROSEMIDE [Concomitant]
  8. ZOCOR [Concomitant]
  9. ZETIA [Concomitant]
  10. DIGOXIN [Concomitant]
  11. POTASSIUM ACETATE [Concomitant]
  12. PROBENECID [Concomitant]
  13. UROXATRAL [Concomitant]
  14. NIASPAN [Concomitant]
  15. COUMADIN [Concomitant]

REACTIONS (1)
  - DRUG INEFFECTIVE [None]
